FAERS Safety Report 19484294 (Version 1)
Quarter: 2021Q3

REPORT INFORMATION
  Report Type: Other
  Country: US (occurrence: US)
  Receive Date: 20210701
  Receipt Date: 20210701
  Transmission Date: 20211014
  Serious: Yes (Other)
  Sender: FDA-Public Use
  Company Number: US-GLAUKOS-AVE-2021-0171-AE

PATIENT
  Age: 53 Year
  Sex: Female

DRUGS (8)
  1. PHOTREXA VISCOUS [Suspect]
     Active Substance: RIBOFLAVIN 5^-PHOSPHATE SODIUM
     Indication: CORNEAL DISORDER
     Dosage: ONE DROP OF PHOTREXA VISCOUS WAS GIVEN EVERY 2 MINUTES FOR 30 MINUTES
     Route: 047
  2. BANDAGE CONTACT LENS [Concomitant]
     Active Substance: DEVICE
     Indication: PRODUCT USED FOR UNKNOWN INDICATION
     Route: 047
  3. MOXIFLOXACIN. [Concomitant]
     Active Substance: MOXIFLOXACIN
     Indication: PRODUCT USED FOR UNKNOWN INDICATION
     Dosage: 4 TIMES A DAY IN THE RIGHT EYE
     Route: 047
  4. KXL SYSTEM [Suspect]
     Active Substance: DEVICE
     Indication: CORNEAL DISORDER
     Route: 047
  5. DEHYDRATED ALCOHOL SOLUTION [Concomitant]
     Indication: PRODUCT USED FOR UNKNOWN INDICATION
  6. PREDNISOLONE. [Concomitant]
     Active Substance: PREDNISOLONE
     Indication: PRODUCT USED FOR UNKNOWN INDICATION
     Dosage: 4 TIMES A DAY FOR FIRST 4 DAYS POSTOPERATIVE IN THE RIGHT EYE
     Route: 047
  7. COLLAGEN PLUG [Concomitant]
     Indication: PRODUCT USED FOR UNKNOWN INDICATION
     Route: 047
  8. PREDNISOLONE. [Concomitant]
     Active Substance: PREDNISOLONE
     Dosage: POSTOPERATIVE DAY 4, PREDNISOLONE WAS INCREASED TO HOURLY DOSING WHILE AWAKE IN THE RIGHT EYE
     Route: 047

REACTIONS (7)
  - Diffuse lamellar keratitis [Recovered/Resolved]
  - Visual acuity reduced [Not Recovered/Not Resolved]
  - Infective keratitis [Recovered/Resolved]
  - Corneal opacity [Unknown]
  - Photophobia [Unknown]
  - Corneal flap complication [Recovered/Resolved]
  - Visual impairment [Recovering/Resolving]
